FAERS Safety Report 25588687 (Version 2)
Quarter: 2025Q3

REPORT INFORMATION
  Report Type: Report from Study
  Country: US (occurrence: US)
  Receive Date: 20250722
  Receipt Date: 20250729
  Transmission Date: 20251021
  Serious: Yes (Other)
  Sender: UCB
  Company Number: US-UCBSA-2025044548

PATIENT
  Sex: Male
  Weight: 52.6 kg

DRUGS (2)
  1. FINTEPLA [Suspect]
     Active Substance: FENFLURAMINE
     Indication: Lennox-Gastaut syndrome
     Dates: start: 20240915
  2. FINTEPLA [Suspect]
     Active Substance: FENFLURAMINE
     Dosage: 2.5 MILLILITER, 2X/DAY (BID)

REACTIONS (3)
  - Pulmonary valve incompetence [Unknown]
  - Ejection fraction decreased [Not Recovered/Not Resolved]
  - Wall motion score index abnormal [Not Recovered/Not Resolved]

NARRATIVE: CASE EVENT DATE: 20250101
